FAERS Safety Report 6859897-8 (Version None)
Quarter: 2010Q3

REPORT INFORMATION
  Report Type: 
  Country: None (occurrence: None)
  Receive Date: 20100720
  Receipt Date: 20100122
  Transmission Date: 20110219
  Serious: Yes (Hospitalization)
  Sender: FDA-Public Use
  Company Number: JP-SANOFI-AVENTIS-2009SA010823

PATIENT
  Age: 67 Year
  Sex: Female

DRUGS (5)
  1. PLAVIX [Suspect]
     Indication: ANGINA PECTORIS
     Route: 048
     Dates: start: 20091211, end: 20100112
  2. LEXIN [Suspect]
     Route: 048
     Dates: end: 20091222
  3. PHENOBARBITAL TAB [Concomitant]
     Route: 048
  4. ASPIRIN [Concomitant]
     Indication: ANGINA PECTORIS
     Route: 048
     Dates: start: 20091211, end: 20100112
  5. TAKEPRON [Concomitant]
     Route: 048
     Dates: start: 20091211

REACTIONS (1)
  - NO ADVERSE EVENT [None]
